FAERS Safety Report 21579839 (Version 5)
Quarter: 2023Q1

REPORT INFORMATION
  Report Type: Report from Study
  Country: FR (occurrence: None)
  Receive Date: 20221110
  Receipt Date: 20230119
  Transmission Date: 20230417
  Serious: Yes (Death, Hospitalization)
  Sender: FDA-Public Use
  Company Number: FR-Eisai Medical Research-EC-2022-127724

PATIENT
  Age: 84 Year
  Sex: Female
  Weight: 59 kg

DRUGS (18)
  1. LENVATINIB [Suspect]
     Active Substance: LENVATINIB
     Indication: Endometrial cancer
     Dosage: STARTING DOSE AT 20 MG (FLUCTUATED DOSE)
     Route: 048
     Dates: start: 20220224, end: 20221103
  2. LENVATINIB [Suspect]
     Active Substance: LENVATINIB
     Route: 048
     Dates: start: 20221116, end: 20221228
  3. VIBOSTOLIMAB [Suspect]
     Active Substance: VIBOSTOLIMAB
     Indication: Endometrial cancer
     Dosage: VISTOLOMAB (MK-7684) 200 MG (+) PEMBROLIZUMAB (MK-3475) 200 MG
     Route: 042
     Dates: start: 20220224, end: 20221014
  4. VIBOSTOLIMAB [Suspect]
     Active Substance: VIBOSTOLIMAB
     Dosage: VISTOLOMAB (MK-7684) 200 MG (+) PEMBROLIZUMAB (MK-3475) 200 MG
     Route: 042
     Dates: start: 20221116, end: 20221208
  5. PROPRANOLOL [Concomitant]
     Active Substance: PROPRANOLOL HYDROCHLORIDE
     Dates: start: 201701
  6. CARTEOLOL HYDROCHLORIDE [Concomitant]
     Active Substance: CARTEOLOL HYDROCHLORIDE
     Dates: start: 202201
  7. LATANOPROST [Concomitant]
     Active Substance: LATANOPROST
     Dates: start: 202201
  8. HYDROCHLOROTHIAZIDE [Concomitant]
     Active Substance: HYDROCHLOROTHIAZIDE
     Dates: start: 20220301
  9. LERCANIDIPINE [Concomitant]
     Active Substance: LERCANIDIPINE
     Dates: start: 20220512
  10. MAGNESIUM PIDOLATE [Concomitant]
     Active Substance: MAGNESIUM PIDOLATE
     Dates: start: 20220520, end: 20221208
  11. IRBESARTAN [Concomitant]
     Active Substance: IRBESARTAN
     Dates: start: 20220630, end: 20221104
  12. NERISONE [Concomitant]
     Active Substance: DIFLUCORTOLONE VALERATE
     Dates: start: 20220902, end: 202211
  13. LEVOTHYROXINE SODIUM [Concomitant]
     Active Substance: LEVOTHYROXINE SODIUM
     Dates: start: 20221014, end: 20221106
  14. GAVISCONELL MENTHE [CALCIUM CARBONATE;SODIUM ALGINATE;SODIUM BICARBONA [Concomitant]
     Dates: start: 20221014
  15. PRISTINAMYCIN [Concomitant]
     Active Substance: PRISTINAMYCIN
     Dates: start: 20221028, end: 20221103
  16. SODIUM CHLORIDE [Concomitant]
     Active Substance: SODIUM CHLORIDE
     Dates: start: 20121105, end: 20221116
  17. PEMBROLIZUMAB [Suspect]
     Active Substance: PEMBROLIZUMAB
     Dates: start: 20220224
  18. PEMBROLIZUMAB [Suspect]
     Active Substance: PEMBROLIZUMAB
     Dates: start: 20221116

REACTIONS (2)
  - General physical health deterioration [Fatal]
  - Hyponatraemia [Recovered/Resolved]

NARRATIVE: CASE EVENT DATE: 20221104
